FAERS Safety Report 13339217 (Version 2)
Quarter: 2017Q2

REPORT INFORMATION
  Report Type: Spontaneous
  Country: US (occurrence: US)
  Receive Date: 20170315
  Receipt Date: 20170411
  Transmission Date: 20170830
  Serious: Yes (Other)
  Sender: FDA-Public Use
  Company Number: US-AKORN PHARMACEUTICALS-2017AKN00269

PATIENT
  Age: 16 Year
  Sex: Female
  Weight: 58.96 kg

DRUGS (2)
  1. MYORISAN [Suspect]
     Active Substance: ISOTRETINOIN
     Indication: ACNE CYSTIC
     Dosage: 20 MG, 1X/DAY
     Route: 048
     Dates: start: 201701, end: 20170203
  2. MYORISAN [Suspect]
     Active Substance: ISOTRETINOIN
     Dosage: 40 MG, 1X/DAY
     Route: 048
     Dates: start: 20170203, end: 20170228

REACTIONS (2)
  - Inappropriate schedule of drug administration [Recovered/Resolved]
  - Depression [Unknown]

NARRATIVE: CASE EVENT DATE: 2017
